FAERS Safety Report 7861591-1 (Version None)
Quarter: 2011Q4

REPORT INFORMATION
  Report Type: 
  Country: None (occurrence: None)
  Receive Date: 20111027
  Receipt Date: 20111019
  Transmission Date: 20120403
  Serious: Yes (Hospitalization)
  Sender: FDA-Public Use
  Company Number: US-MILLENNIUM PHARMACEUTICALS, INC.-2011-04994

PATIENT
  Age: 69 Year
  Sex: Male
  Weight: 79.909 kg

DRUGS (4)
  1. VELCADE [Suspect]
     Indication: MULTIPLE MYELOMA
     Dosage: 2 MG, CYCLIC
     Route: 042
     Dates: start: 20110426, end: 20110721
  2. DEXAMETHASONE [Suspect]
     Dosage: 40 MG, CYCLIC
     Route: 042
     Dates: start: 20110426, end: 20110721
  3. DOXIL [Suspect]
     Indication: MULTIPLE MYELOMA
     Dosage: 10 MG, CYCLIC
     Route: 042
     Dates: start: 20110426, end: 20110721
  4. DEXAMETHASONE [Suspect]
     Indication: MULTIPLE MYELOMA
     Dosage: 40 MG, CYCLIC
     Route: 048
     Dates: start: 20110426, end: 20110721

REACTIONS (2)
  - LOSS OF CONSCIOUSNESS [None]
  - FALL [None]
